FAERS Safety Report 9798945 (Version 6)
Quarter: 2015Q2

REPORT INFORMATION
  Report Type: Spontaneous
  Country: US (occurrence: US)
  Receive Date: 20140106
  Receipt Date: 20150514
  Transmission Date: 20150821
  Serious: Yes (Death, Hospitalization, Disabling, Other)
  Sender: FDA-Public Use
  Company Number: US-009507513-1401USA000714

PATIENT
  Sex: Female
  Weight: 110.66 kg

DRUGS (6)
  1. JANUMET [Suspect]
     Active Substance: METFORMIN HYDROCHLORIDE\SITAGLIPTIN PHOSPHATE
     Indication: TYPE 2 DIABETES MELLITUS
     Dosage: 50/500 MG QD
     Route: 048
     Dates: start: 200805, end: 201001
  2. JANUMET [Suspect]
     Active Substance: METFORMIN HYDROCHLORIDE\SITAGLIPTIN PHOSPHATE
     Dosage: 50/1000  MG QD
     Route: 048
     Dates: start: 201001, end: 201011
  3. JANUMET [Suspect]
     Active Substance: METFORMIN HYDROCHLORIDE\SITAGLIPTIN PHOSPHATE
     Dosage: 50/500 MG BID
     Route: 048
     Dates: start: 20080513, end: 20091119
  4. JANUMET [Suspect]
     Active Substance: METFORMIN HYDROCHLORIDE\SITAGLIPTIN PHOSPHATE
     Dosage: 50/1000 MG BID
     Route: 048
     Dates: start: 20090604, end: 20120109
  5. JANUMET [Suspect]
     Active Substance: METFORMIN HYDROCHLORIDE\SITAGLIPTIN PHOSPHATE
     Dosage: 50/1000  MG QD
     Route: 048
     Dates: start: 200906, end: 200906
  6. JANUVIA [Suspect]
     Active Substance: SITAGLIPTIN PHOSPHATE
     Indication: TYPE 2 DIABETES MELLITUS
     Dosage: UNK
     Route: 048
     Dates: start: 200805, end: 201009

REACTIONS (23)
  - Staphylococcal sepsis [Unknown]
  - Lung cancer metastatic [Unknown]
  - Pleural effusion [Unknown]
  - Gastrooesophageal reflux disease [Unknown]
  - Cardiac failure congestive [Unknown]
  - Death [Fatal]
  - Hyperosmolar hyperglycaemic state [Unknown]
  - Nausea [Recovered/Resolved]
  - Adenocarcinoma pancreas [Unknown]
  - Diabetes mellitus inadequate control [Unknown]
  - Constipation [Unknown]
  - Injury [Not Recovered/Not Resolved]
  - Diabetes mellitus inadequate control [Unknown]
  - Metabolic alkalosis [Unknown]
  - Duodenal obstruction [Recovered/Resolved]
  - Osteoarthritis [Unknown]
  - Device occlusion [Unknown]
  - Diabetes mellitus inadequate control [Unknown]
  - Vitamin D deficiency [Unknown]
  - Coronary artery disease [Unknown]
  - Inappropriate schedule of drug administration [Unknown]
  - Vomiting [Recovered/Resolved]
  - Diabetic ketoacidosis [Unknown]

NARRATIVE: CASE EVENT DATE: 20120122
